FAERS Safety Report 5812691-9 (Version None)
Quarter: 2008Q3

REPORT INFORMATION
  Report Type: 
  Country: None (occurrence: None)
  Receive Date: 20080714
  Receipt Date: 20080714
  Transmission Date: 20090109
  Serious: Yes (Other)
  Sender: FDA-Public Use
  Company Number: None

PATIENT
  Age: 22 Year
  Sex: Female
  Weight: 54.4316 kg

DRUGS (1)
  1. CIPRO [Suspect]
     Indication: URINARY TRACT INFECTION
     Dosage: 1 TABLET 2X PER DAY PO
     Route: 048
     Dates: start: 20080622, end: 20080626

REACTIONS (3)
  - CARTILAGE INJURY [None]
  - MULTIPLE INJURIES [None]
  - TENDON DISORDER [None]
